FAERS Safety Report 23575776 (Version 2)
Quarter: 2024Q1

REPORT INFORMATION
  Report Type: Spontaneous
  Country: JP (occurrence: JP)
  Receive Date: 20240228
  Receipt Date: 20240320
  Transmission Date: 20240410
  Serious: Yes (Other)
  Sender: FDA-Public Use
  Company Number: JP-MSD-M2024-06601

PATIENT
  Age: 80 Year
  Sex: Male

DRUGS (5)
  1. KEYTRUDA [Suspect]
     Active Substance: PEMBROLIZUMAB
     Indication: Oesophageal carcinoma
     Dosage: 200 MILLIGRAM, Q3W
     Route: 041
     Dates: start: 20240129
  2. CISPLATIN [Suspect]
     Active Substance: CISPLATIN
     Indication: Oesophageal carcinoma
     Dosage: 80 MILLIGRAM/SQ. METER, Q3W
     Route: 041
     Dates: start: 20240129, end: 20240129
  3. CISPLATIN [Suspect]
     Active Substance: CISPLATIN
     Dosage: 60 MILLIGRAM/SQ. METER, Q3W
     Route: 041
     Dates: start: 20240219
  4. FLUOROURACIL [Concomitant]
     Active Substance: FLUOROURACIL
     Indication: Oesophageal carcinoma
     Dosage: 800 MILLIGRAM/SQ. METER, Q3W (CONTINUOUS ADMINISTRATION FOR 5 DAYS)
     Route: 041
     Dates: start: 20240129, end: 2024
  5. FLUOROURACIL [Concomitant]
     Active Substance: FLUOROURACIL
     Dosage: 600 MILLIGRAM/SQ. METER, Q3W
     Route: 041
     Dates: start: 2024

REACTIONS (1)
  - Myelosuppression [Recovering/Resolving]

NARRATIVE: CASE EVENT DATE: 20240219
